FAERS Safety Report 8662882 (Version 3)
Quarter: 2013Q4

REPORT INFORMATION
  Report Type: Report from Study
  Country: CA (occurrence: CA)
  Receive Date: 20120712
  Receipt Date: 20131031
  Transmission Date: 20140711
  Serious: Yes (Disabling)
  Sender: FDA-Public Use
  Company Number: CA-009507513-1206USA05091

PATIENT
  Age: 57 Year
  Sex: Male
  Weight: 118 kg

DRUGS (6)
  1. EZETROL [Suspect]
     Indication: PRODUCT USED FOR UNKNOWN INDICATION
     Dosage: 10 MG, QD
     Route: 048
     Dates: start: 201009
  2. BISOPROLOL [Concomitant]
  3. PLAVIX [Concomitant]
     Dosage: UNK
     Dates: start: 2001
  4. PANTOPRAZOLE SODIUM [Concomitant]
     Dosage: UNK
     Dates: start: 2001
  5. ASAPHEN [Concomitant]
     Dosage: UNK
     Dates: start: 2001
  6. XENICAL [Concomitant]
     Dosage: UNK
     Dates: start: 2004

REACTIONS (8)
  - Condition aggravated [Unknown]
  - Oedema peripheral [Recovered/Resolved]
  - Obesity [Unknown]
  - Muscle mass [Unknown]
  - Protein C increased [Unknown]
  - Red blood cell sedimentation rate increased [Unknown]
  - Arthralgia [Unknown]
  - Pain [Unknown]
